FAERS Safety Report 8264431-4 (Version None)
Quarter: 2012Q2

REPORT INFORMATION
  Report Type: 
  Country: None (occurrence: None)
  Receive Date: 20120406
  Receipt Date: 20120403
  Transmission Date: 20120825
  Serious: No
  Sender: FDA-Public Use
  Company Number: US-PFIZER INC-2012034912

PATIENT
  Sex: Female
  Weight: 70.295 kg

DRUGS (3)
  1. ALLEGRA-D 12 HOUR [Suspect]
     Dosage: UNK
  2. MUCINEX [Suspect]
     Dosage: UNK
  3. ADVIL CONGESTION RELIEF [Suspect]
     Indication: SWELLING
     Dosage: UNK
     Dates: start: 20120207

REACTIONS (2)
  - NASAL CONGESTION [None]
  - DRUG INEFFECTIVE [None]
